FAERS Safety Report 9947371 (Version 1)
Quarter: 2014Q1

REPORT INFORMATION
  Report Type: Report from Study
  Country: US (occurrence: US)
  Receive Date: 20140303
  Receipt Date: 20140303
  Transmission Date: 20141002
  Serious: No
  Sender: FDA-Public Use
  Company Number: US-ABBVIE-13P-163-1064051-00

PATIENT
  Age: 29 Year
  Sex: Female

DRUGS (3)
  1. HUMIRA [Suspect]
     Indication: CROHN^S DISEASE
     Dates: start: 20130215, end: 20130215
  2. HUMIRA [Suspect]
     Dates: start: 20130308, end: 20130308
  3. ANALPRAM CREAM [Concomitant]
     Indication: PRODUCT USED FOR UNKNOWN INDICATION
     Dosage: APPROXIMATELY 5X DAILY

REACTIONS (5)
  - Upper-airway cough syndrome [Recovering/Resolving]
  - Proctalgia [Unknown]
  - Influenza like illness [Recovering/Resolving]
  - Injection site pain [Unknown]
  - Injection site bruising [Unknown]
